FAERS Safety Report 5352824-4 (Version None)
Quarter: 2007Q2

REPORT INFORMATION
  Report Type: 
  Country: None (occurrence: None)
  Receive Date: 20070611
  Receipt Date: 20070531
  Transmission Date: 20071010
  Serious: No
  Sender: FDA-Public Use
  Company Number: US-ASTRAZENECA-2006UW07900

PATIENT
  Age: 615 Month
  Sex: Male
  Weight: 84.5 kg

DRUGS (3)
  1. SEROQUEL [Suspect]
     Indication: DEPRESSION
     Route: 048
     Dates: start: 20041101, end: 20050801
  2. THORAZINE [Concomitant]
  3. ZYPREXA [Concomitant]

REACTIONS (1)
  - DIABETES MELLITUS [None]
